FAERS Safety Report 14263019 (Version 1)
Quarter: 2017Q4

REPORT INFORMATION
  Report Type: Spontaneous
  Country: US (occurrence: US)
  Receive Date: 20171208
  Receipt Date: 20171208
  Transmission Date: 20180321
  Serious: No
  Sender: FDA-Public Use
  Company Number: US-GLAXOSMITHKLINE-US2017188319

PATIENT
  Sex: Female

DRUGS (9)
  1. ASPIRIN. [Concomitant]
     Active Substance: ASPIRIN
  2. IRON [Concomitant]
     Active Substance: IRON
  3. METOPROLOL. [Concomitant]
     Active Substance: METOPROLOL
  4. SIMVASTATIN. [Concomitant]
     Active Substance: SIMVASTATIN
  5. PROAIR HFA [Concomitant]
     Active Substance: ALBUTEROL SULFATE
  6. LUNESTA [Concomitant]
     Active Substance: ESZOPICLONE
  7. PANTOPRAZOLE [Concomitant]
     Active Substance: PANTOPRAZOLE
  8. ADVAIR DISKUS [Suspect]
     Active Substance: FLUTICASONE PROPIONATE\SALMETEROL XINAFOATE
     Indication: MULTIPLE ALLERGIES
     Dosage: 1 PUFF(S), BID
     Route: 055
  9. MAGNESIUM [Concomitant]
     Active Substance: MAGNESIUM

REACTIONS (6)
  - Aortic bruit [Unknown]
  - Malaise [Unknown]
  - Product use in unapproved indication [Unknown]
  - Drug ineffective [Unknown]
  - Cardiac murmur [Unknown]
  - Condition aggravated [Unknown]
